FAERS Safety Report 8980719 (Version 1)
Quarter: 2012Q4

REPORT INFORMATION
  Report Type: Report from Study
  Country: JP (occurrence: JP)
  Receive Date: 20121221
  Receipt Date: 20121221
  Transmission Date: 20130627
  Serious: Yes (Other)
  Sender: FDA-Public Use
  Company Number: JP-VERTEX PHARMACEUTICALS INC.-2012-026459

PATIENT
  Age: 57 Year
  Sex: Male

DRUGS (16)
  1. VX-950 (TELAPREVIR) [Suspect]
     Indication: CHRONIC HEPATITIS C
     Dosage: 2250 mg, qd
     Route: 048
     Dates: start: 20120206, end: 20120504
  2. PEGINTERFERON ALFA-2B [Suspect]
     Indication: CHRONIC HEPATITIS C
     Dosage: 1.11 ?g/kg, qw
     Route: 058
     Dates: start: 20120206, end: 20120305
  3. PEGINTERFERON ALFA-2B [Suspect]
     Dosage: 0.89 ?g/kg, qw
     Route: 058
     Dates: start: 20120306
  4. PEGINTERFERON ALFA-2B [Suspect]
     Dosage: 80 ?g, qw
     Dates: end: 20120727
  5. RIBAVIRIN [Concomitant]
     Dosage: 200 mg, qd
     Route: 048
     Dates: start: 20120206, end: 20120705
  6. RIBAVIRIN [Concomitant]
     Dosage: 400 mg, qd
     Route: 048
     Dates: start: 20120706, end: 20120727
  7. TAKEPRON [Concomitant]
     Dosage: 15 mg, qd
     Route: 048
  8. BAYASPIRIN [Concomitant]
     Dosage: 1 DF, qd
     Route: 048
  9. ARTIST [Concomitant]
     Dosage: 0.5 DF, qd
     Route: 048
  10. MEVALOTIN [Concomitant]
     Dosage: 1 DF, qd
     Route: 048
  11. ALLOPURINOL [Concomitant]
     Dosage: 100 mg, qd
     Route: 048
  12. LASIX                              /00032601/ [Concomitant]
     Dosage: 40 mg, qd
     Route: 048
  13. RENIVACE [Concomitant]
     Dosage: 1 DF, qd
     Route: 048
  14. ALLEGRA [Concomitant]
     Dosage: 120 mg, qd
     Route: 048
     Dates: start: 20120206
  15. TALION                             /01587402/ [Concomitant]
     Dosage: 20 mg, qd
     Route: 048
     Dates: start: 20120217, end: 20120224
  16. TALION                             /01587402/ [Concomitant]
     Dosage: 20 mg, qd
     Route: 048

REACTIONS (1)
  - White blood cell count decreased [Recovered/Resolved]
